FAERS Safety Report 16584512 (Version 2)
Quarter: 2019Q3

REPORT INFORMATION
  Report Type: Spontaneous
  Country: CI (occurrence: CI)
  Receive Date: 20190717
  Receipt Date: 20190903
  Transmission Date: 20191004
  Serious: Yes (Death, Life-Threatening, Hospitalization)
  Sender: FDA-Public Use
  Company Number: PHHY2019CI052468

PATIENT
  Age: 61 Year
  Sex: Female

DRUGS (1)
  1. DICLOFENAC [Suspect]
     Active Substance: DICLOFENAC
     Indication: BACK PAIN
     Dosage: 50 MG, ONCE/SINGLE 3 TABLETS
     Route: 048

REACTIONS (9)
  - Stevens-Johnson syndrome [Unknown]
  - Lymphopenia [Unknown]
  - Systemic inflammatory response syndrome [Unknown]
  - General physical condition decreased [Unknown]
  - Toxic epidermal necrolysis [Fatal]
  - Skin exfoliation [Fatal]
  - Tachycardia [Fatal]
  - Pyrexia [Fatal]
  - Mucosal erosion [Fatal]
